FAERS Safety Report 6510830-8 (Version None)
Quarter: 2009Q4

REPORT INFORMATION
  Report Type: 
  Country: None (occurrence: None)
  Receive Date: 20091222
  Receipt Date: 20090123
  Transmission Date: 20100525
  Serious: No
  Sender: FDA-Public Use
  Company Number: CA-ASTRAZENECA-2009UW02516

PATIENT
  Age: 75 Year
  Sex: Male

DRUGS (3)
  1. CRESTOR [Suspect]
     Route: 048
     Dates: start: 19960101, end: 20080101
  2. CRESTOR [Suspect]
     Route: 048
     Dates: start: 20080101
  3. WATER PILL [Suspect]
     Indication: FLUID RETENTION
     Dosage: UNKNOWN
     Route: 048
     Dates: end: 20090116

REACTIONS (6)
  - CHILLS [None]
  - HYPOAESTHESIA [None]
  - MUSCULAR WEAKNESS [None]
  - MUSCULOSKELETAL PAIN [None]
  - OEDEMA PERIPHERAL [None]
  - PARAESTHESIA [None]
